FAERS Safety Report 6821756-4 (Version None)
Quarter: 2010Q3

REPORT INFORMATION
  Report Type: 
  Country: None (occurrence: None)
  Receive Date: 20100707
  Receipt Date: 20100623
  Transmission Date: 20110219
  Serious: Yes (Disabling, Other)
  Sender: FDA-Public Use
  Company Number: GB-MYLANLABS-2010S1011206

PATIENT
  Age: 81 Year
  Sex: Female

DRUGS (1)
  1. DOXYCYCLINE [Suspect]
     Indication: ROSACEA
     Route: 048
     Dates: start: 20100511, end: 20100609

REACTIONS (2)
  - DIPLOPIA [None]
  - VISUAL IMPAIRMENT [None]
